APPROVED DRUG PRODUCT: CUPRIC SULFATE
Active Ingredient: CUPRIC SULFATE
Strength: EQ 0.4MG COPPER/ML **Federal Register determination that product was not discontinued or withdrawn for safety or effectiveness reasons**
Dosage Form/Route: INJECTABLE;INJECTION
Application: N019350 | Product #001
Applicant: ABRAXIS PHARMACEUTICAL PRODUCTS
Approved: May 5, 1987 | RLD: Yes | RS: No | Type: DISCN